FAERS Safety Report 7351751-0 (Version None)
Quarter: 2011Q1

REPORT INFORMATION
  Report Type: 
  Country: None (occurrence: None)
  Receive Date: 20110315
  Receipt Date: 20110304
  Transmission Date: 20110831
  Serious: No
  Sender: FDA-Public Use
  Company Number: US-JNJFOC-20110303072

PATIENT
  Sex: Female
  Weight: 113.4 kg

DRUGS (3)
  1. FENTANYL [Suspect]
     Indication: LUMBAR SPINAL STENOSIS
     Route: 062
  2. COUMADIN [Concomitant]
     Route: 048
  3. HYDROCODONE BITARTRATE [Concomitant]
     Indication: PAIN
     Route: 048

REACTIONS (2)
  - DRUG INEFFECTIVE [None]
  - INAPPROPRIATE SCHEDULE OF DRUG ADMINISTRATION [None]
